FAERS Safety Report 4294553-4 (Version None)
Quarter: 2004Q1

REPORT INFORMATION
  Report Type: 
  Country: None (occurrence: None)
  Receive Date: 20040213
  Receipt Date: 20031224
  Transmission Date: 20041129
  Serious: Yes (Life-Threatening, Hospitalization)
  Sender: FDA-Public Use
  Company Number: WAES 0312USA02546

PATIENT
  Age: 84 Year
  Sex: Female

DRUGS (8)
  1. CLOSTRIDIUM BUTYRICUM STRAIN M-55 [Concomitant]
     Route: 048
     Dates: start: 20020530, end: 20031215
  2. ASPIRIN [Concomitant]
     Route: 048
  3. POLARAMINE [Concomitant]
     Route: 048
     Dates: start: 20031014, end: 20031028
  4. PEPCID RPD [Suspect]
     Indication: REFLUX OESOPHAGITIS
     Route: 048
     Dates: start: 20021002, end: 20031215
  5. LEVOTHYROXINE SODIUM [Concomitant]
     Route: 048
  6. MAGNESIUM OXIDE [Concomitant]
     Route: 048
     Dates: start: 20020530, end: 20031215
  7. MOBIC [Suspect]
     Indication: BACK PAIN
     Route: 048
     Dates: start: 20030602, end: 20031215
  8. PANTOSIN [Concomitant]
     Route: 048
     Dates: start: 20020530, end: 20031215

REACTIONS (1)
  - PNEUMONIA [None]
